FAERS Safety Report 7624162-8 (Version None)
Quarter: 2011Q3

REPORT INFORMATION
  Report Type: 
  Country: None (occurrence: None)
  Receive Date: 20110720
  Receipt Date: 20110720
  Transmission Date: 20111222
  Serious: Yes (Hospitalization)
  Sender: FDA-Public Use
  Company Number: None

PATIENT
  Age: 64 Year
  Sex: Female
  Weight: 53 kg

DRUGS (10)
  1. CALCIUM CARBONATE [Interacting]
     Route: 048
  2. WELLBUTRIN [Interacting]
     Route: 048
  3. TRAZODONE HCL [Interacting]
  4. GARLIC [Interacting]
  5. DECITABINE [Suspect]
     Indication: ACUTE MYELOID LEUKAEMIA
     Dosage: 20MG/M2 OVER 1 HOUR
     Route: 042
     Dates: start: 20110216, end: 20110622
  6. SENOKOT [Interacting]
  7. ONDANSETRON [Concomitant]
     Dosage: 8MG
     Route: 042
     Dates: start: 20110216, end: 20110622
  8. ATIVAN [Interacting]
     Route: 048
  9. CLOTRIMAZOLE [Interacting]
  10. VITAMIN D [Interacting]
     Route: 048

REACTIONS (4)
  - VOMITING [None]
  - DIZZINESS [None]
  - PYREXIA [None]
  - NEUTROPENIA [None]
